FAERS Safety Report 14217875 (Version 2)
Quarter: 2017Q4

REPORT INFORMATION
  Report Type: Spontaneous
  Country: AT (occurrence: AT)
  Receive Date: 20171123
  Receipt Date: 20171129
  Transmission Date: 20180321
  Serious: Yes (Hospitalization)
  Sender: FDA-Public Use
  Company Number: AT-B.I. PHARMACEUTICALS,INC./RIDGEFIELD-2017-BI-061872

PATIENT
  Age: 62 Year
  Sex: Female
  Weight: 47 kg

DRUGS (6)
  1. GILOTRIF [Suspect]
     Active Substance: AFATINIB
     Indication: NON-SMALL CELL LUNG CANCER
  2. GILOTRIF [Suspect]
     Active Substance: AFATINIB
     Indication: ADENOCARCINOMA
     Route: 048
     Dates: start: 20170802, end: 20171010
  3. GILOTRIF [Suspect]
     Active Substance: AFATINIB
     Indication: EGFR GENE MUTATION
  4. NEBIVOLOL. [Concomitant]
     Active Substance: NEBIVOLOL
     Indication: HYPERTENSION
     Route: 065
  5. NACL NASENSPRAY [Concomitant]
     Indication: PRODUCT USED FOR UNKNOWN INDICATION
     Route: 065
  6. NOVALGIN [Concomitant]
     Active Substance: METAMIZOLE SODIUM
     Indication: HYPERTHYROIDISM
     Route: 065

REACTIONS (1)
  - Adrenal haemorrhage [Recovered/Resolved]

NARRATIVE: CASE EVENT DATE: 20171010
